FAERS Safety Report 6316189-3 (Version None)
Quarter: 2009Q3

REPORT INFORMATION
  Report Type: 
  Country: None (occurrence: None)
  Receive Date: 20090820
  Receipt Date: 20090812
  Transmission Date: 20100115
  Serious: Yes (Other)
  Sender: FDA-Public Use
  Company Number: TR-ELI_LILLY_AND_COMPANY-TR200908002582

PATIENT
  Age: 32 Year
  Sex: Female

DRUGS (2)
  1. HUMULIN R [Suspect]
     Indication: BLOOD GLUCOSE INCREASED
     Dosage: 10 IU, DAILY (1/D)
     Route: 058
     Dates: start: 20090428
  2. HUMULIN N [Suspect]
     Indication: BLOOD GLUCOSE INCREASED
     Dosage: 2 IU, DAILY (1/D)
     Route: 058
     Dates: start: 20090428

REACTIONS (2)
  - DRUG EXPOSURE DURING PREGNANCY [None]
  - HIGH RISK PREGNANCY [None]
